FAERS Safety Report 19097686 (Version 1)
Quarter: 2021Q2

REPORT INFORMATION
  Report Type: Spontaneous
  Country: MX (occurrence: MX)
  Receive Date: 20210406
  Receipt Date: 20210406
  Transmission Date: 20210717
  Serious: Yes (Life-Threatening, Other)
  Sender: FDA-Public Use
  Company Number: MX-TAKEDA-2021TUS021501

PATIENT
  Sex: Male

DRUGS (1)
  1. VYVANSE [Suspect]
     Active Substance: LISDEXAMFETAMINE DIMESYLATE
     Indication: PRODUCT USED FOR UNKNOWN INDICATION
     Route: 065

REACTIONS (11)
  - Eating disorder [Unknown]
  - Drug abuse [Unknown]
  - Feeling of despair [Unknown]
  - Impulse-control disorder [Unknown]
  - Anxiety [Unknown]
  - Unevaluable event [Unknown]
  - Depression [Recovered/Resolved]
  - Insomnia [Unknown]
  - Stress [Unknown]
  - Poor personal hygiene [Unknown]
  - High risk sexual behaviour [Unknown]
